FAERS Safety Report 5964060-9 (Version None)
Quarter: 2008Q4

REPORT INFORMATION
  Report Type: 
  Country: None (occurrence: None)
  Receive Date: 20081124
  Receipt Date: 20081111
  Transmission Date: 20090506
  Serious: Yes (Other)
  Sender: FDA-Public Use
  Company Number: US-ELI_LILLY_AND_COMPANY-US200811002535

PATIENT
  Sex: Female

DRUGS (5)
  1. ZYPREXA [Suspect]
     Indication: DEMENTIA ALZHEIMER'S TYPE
     Dosage: 2.5 MG, UNK
     Dates: start: 20081024, end: 20081105
  2. ZYPREXA [Suspect]
     Dosage: 5 MG, UNK
     Dates: start: 20081106
  3. ATIVAN [Concomitant]
     Dosage: 0.5 MG, 2/D
  4. LEXAPRO [Concomitant]
     Dosage: 20 MG, 3/D
  5. KEPPRA [Concomitant]
     Indication: CONVULSION
     Dosage: 5 ML, 3/D

REACTIONS (14)
  - ALOPECIA [None]
  - BLOOD CHOLESTEROL INCREASED [None]
  - DEFORMITY [None]
  - FALL [None]
  - GAIT DISTURBANCE [None]
  - GRAND MAL CONVULSION [None]
  - LOSS OF CONSCIOUSNESS [None]
  - MUSCLE SPASMS [None]
  - ORTHOSTATIC HYPOTENSION [None]
  - PERIORBITAL HAEMATOMA [None]
  - PSORIASIS [None]
  - THYROID DISORDER [None]
  - TREMOR [None]
  - URINARY INCONTINENCE [None]
